FAERS Safety Report 18506147 (Version 1)
Quarter: 2020Q4

REPORT INFORMATION
  Report Type: Spontaneous
  Country: PT (occurrence: PT)
  Receive Date: 20201116
  Receipt Date: 20201116
  Transmission Date: 20210114
  Serious: Yes (Other)
  Sender: FDA-Public Use
  Company Number: PT-TAKEDA-2020TEU010516

PATIENT
  Age: 62 Year
  Sex: Female

DRUGS (9)
  1. PROPOFOL. [Suspect]
     Active Substance: PROPOFOL
     Indication: GENERAL ANAESTHESIA
     Dosage: UNK
     Route: 008
  2. SUFENTANIL [Suspect]
     Active Substance: SUFENTANIL
     Indication: INDUCTION OF ANAESTHESIA
     Dosage: UNK
     Route: 008
  3. CEFAZOLIN [Suspect]
     Active Substance: CEFAZOLIN
     Indication: GENERAL ANAESTHESIA
     Dosage: UNK
     Route: 008
  4. BUPIVACAINE. [Suspect]
     Active Substance: BUPIVACAINE
     Indication: INDUCTION OF ANAESTHESIA
     Dosage: UNK
     Route: 008
  5. DROPERIDOL. [Suspect]
     Active Substance: DROPERIDOL
     Indication: INDUCTION OF ANAESTHESIA
     Dosage: UNK
     Route: 008
  6. FENTANYL. [Suspect]
     Active Substance: FENTANYL
     Indication: GENERAL ANAESTHESIA
     Dosage: UNK
     Route: 008
  7. ROCURONIUM [Suspect]
     Active Substance: ROCURONIUM BROMIDE
     Indication: GENERAL ANAESTHESIA
     Dosage: UNK
     Route: 008
  8. DEXAMETHASONE. [Suspect]
     Active Substance: DEXAMETHASONE
     Indication: GENERAL ANAESTHESIA
     Dosage: UNK
     Route: 008
  9. CEFAZOLIN [Suspect]
     Active Substance: CEFAZOLIN
     Indication: INDUCTION OF ANAESTHESIA

REACTIONS (7)
  - Product use in unapproved indication [Recovered/Resolved]
  - Cardiac arrest [Recovered/Resolved]
  - Altered state of consciousness [Recovered/Resolved]
  - Bradycardia [Recovered/Resolved]
  - Anaphylactic reaction [Recovered/Resolved]
  - Hypoxia [Recovered/Resolved]
  - Haemodynamic instability [Recovered/Resolved]
